FAERS Safety Report 7185274-9 (Version None)
Quarter: 2010Q4

REPORT INFORMATION
  Report Type: 
  Country: None (occurrence: None)
  Receive Date: 20101222
  Receipt Date: 20100602
  Transmission Date: 20110411
  Serious: No
  Sender: FDA-Public Use
  Company Number: US-AMGEN-KDL415967

PATIENT

DRUGS (6)
  1. ENBREL [Suspect]
     Indication: PRODUCT USED FOR UNKNOWN INDICATION
     Dosage: 25 MG, 2 TIMES/WK
     Route: 058
  2. SERTRALINE HYDROCHLORIDE [Concomitant]
     Dosage: 100 MG, UNK
  3. MIRTAZAPINE [Concomitant]
     Dosage: 45 MG, UNK
  4. GABAPENTIN [Concomitant]
     Dosage: 600 MG, UNK
  5. LISINOPRIL [Concomitant]
     Dosage: 5 MG, UNK
  6. OMEPRAZOLE [Concomitant]
     Dosage: 20 MG, UNK

REACTIONS (4)
  - FURUNCLE [None]
  - INCISIONAL DRAINAGE [None]
  - STAPHYLOCOCCAL INFECTION [None]
  - UPPER RESPIRATORY TRACT INFECTION [None]
